FAERS Safety Report 10744157 (Version 2)
Quarter: 2015Q1

REPORT INFORMATION
  Report Type: Spontaneous
  Country: US (occurrence: None)
  Receive Date: 20150126
  Receipt Date: 20150203
  Transmission Date: 20150721
  Serious: Yes (Other)
  Sender: FDA-Public Use
  Company Number: 20150014

PATIENT
  Age: 55 Year
  Sex: Female

DRUGS (5)
  1. NITRIC OXIDE. [Concomitant]
     Active Substance: NITRIC OXIDE
  2. VASOPRESSIN. [Suspect]
     Active Substance: VASOPRESSIN
     Indication: VASCULAR RESISTANCE SYSTEMIC DECREASED
  3. VASOPRESSIN. [Suspect]
     Active Substance: VASOPRESSIN
     Indication: MEAN ARTERIAL PRESSURE DECREASED
  4. SILDENAFIL. [Concomitant]
     Active Substance: SILDENAFIL
  5. NOREPINEPHRINE [Concomitant]
     Active Substance: NOREPINEPHRINE\NOREPINEPHRINE BITARTRATE

REACTIONS (1)
  - Hyponatraemia [None]
